FAERS Safety Report 16273226 (Version 1)
Quarter: 2019Q2

REPORT INFORMATION
  Report Type: Spontaneous
  Country: LT (occurrence: LT)
  Receive Date: 20190506
  Receipt Date: 20190506
  Transmission Date: 20190711
  Serious: Yes (Other)
  Sender: FDA-Public Use
  Company Number: LT-ROCHE-2310519

PATIENT
  Sex: Female
  Weight: 60 kg

DRUGS (1)
  1. XOLAIR [Suspect]
     Active Substance: OMALIZUMAB
     Indication: ASTHMA
     Dosage: 300 MG, UNK (ONCE IN 4 WEEKS)
     Route: 058
     Dates: start: 20190326, end: 20190326

REACTIONS (3)
  - Lymphadenopathy [Recovered/Resolved]
  - Rash [Recovered/Resolved]
  - Swollen tongue [Recovered/Resolved]
